FAERS Safety Report 7892835-8 (Version None)
Quarter: 2011Q4

REPORT INFORMATION
  Report Type: 
  Country: None (occurrence: None)
  Receive Date: 20111104
  Receipt Date: 20111027
  Transmission Date: 20120403
  Serious: Yes (Other)
  Sender: FDA-Public Use
  Company Number: GB-AMGEN-GBRSP2011056597

PATIENT
  Age: 32 Year
  Sex: Male

DRUGS (2)
  1. YELLOW FEVER VACCINE [Suspect]
     Indication: FOREIGN TRAVEL
     Dosage: UNK
     Dates: start: 20111002, end: 20111002
  2. ENBREL [Suspect]
     Indication: PSORIASIS
     Dosage: UNK

REACTIONS (2)
  - ALANINE AMINOTRANSFERASE INCREASED [None]
  - GAMMA-GLUTAMYLTRANSFERASE INCREASED [None]
